FAERS Safety Report 24367846 (Version 2)
Quarter: 2024Q4

REPORT INFORMATION
  Report Type: Spontaneous
  Country: NL (occurrence: NL)
  Receive Date: 20240926
  Receipt Date: 20241125
  Transmission Date: 20250115
  Serious: Yes (Death)
  Sender: PERRIGO
  Company Number: None

PATIENT
  Age: 72 Year
  Sex: Male
  Weight: 70 kg

DRUGS (14)
  1. ACETAMINOPHEN [Interacting]
     Active Substance: ACETAMINOPHEN
     Indication: Pain
     Dosage: 4X DAYS 2 PIECES
     Route: 048
     Dates: start: 20240330, end: 20240424
  2. FLUCLOXACILLIN [Interacting]
     Active Substance: FLUCLOXACILLIN
     Indication: Bacteraemia
     Dosage: OPLAAD 2 GRAM EN DAARNA 12G/24 UUR CONTINUE
     Route: 065
     Dates: start: 20240331, end: 20240424
  3. FLUCLOXACILLIN [Interacting]
     Active Substance: FLUCLOXACILLIN
     Dosage: OPLAAD 2 GRAM EN DAARNA 12G/24 UUR CONTINUE
     Route: 065
     Dates: start: 20240331, end: 20240424
  4. RUXOLITINIB [Concomitant]
     Active Substance: RUXOLITINIB
  5. OXYCODONE [Concomitant]
     Active Substance: OXYCODONE
  6. PANTOPRAZOLE [Concomitant]
     Active Substance: PANTOPRAZOLE
     Route: 048
  7. NADROPARIN [Concomitant]
     Active Substance: NADROPARIN
  8. POLYETHYLENE GLYCOLS [Concomitant]
     Active Substance: POLYETHYLENE GLYCOLS
  9. PHOSPHORIC ACID\SODIUM PHOSPHATE, DIBASIC [Concomitant]
     Active Substance: PHOSPHORIC ACID\SODIUM PHOSPHATE, DIBASIC
     Route: 048
  10. LACTULOSE [Concomitant]
     Active Substance: LACTULOSE
  11. PIRITRAMIDE [Concomitant]
     Active Substance: PIRITRAMIDE
  12. IBUPROFEN [Concomitant]
     Active Substance: IBUPROFEN
  13. METOCLOPRAMIDE [Concomitant]
     Active Substance: METOCLOPRAMIDE
  14. CEFTRIAXONE [Concomitant]
     Active Substance: CEFTRIAXONE

REACTIONS (2)
  - Drug interaction [Fatal]
  - Metabolic acidosis [Fatal]

NARRATIVE: CASE EVENT DATE: 20240423
